FAERS Safety Report 16949699 (Version 1)
Quarter: 2019Q4

REPORT INFORMATION
  Report Type: Spontaneous
  Country: CA (occurrence: CA)
  Receive Date: 20191023
  Receipt Date: 20191023
  Transmission Date: 20200122
  Serious: Yes (Hospitalization)
  Sender: FDA-Public Use
  Company Number: CA-TEVA-2019-CA-1127541

PATIENT
  Age: 77 Year
  Sex: Male

DRUGS (19)
  1. LEUCOVORIN. [Suspect]
     Active Substance: LEUCOVORIN
     Indication: COLORECTAL CANCER METASTATIC
     Dosage: 75 MG, FORTNIGHTY
     Route: 042
     Dates: start: 20190116, end: 20190710
  2. 5-FLUOROURACIL [Suspect]
     Active Substance: FLUOROURACIL
     Dosage: 4550 MG, Q2WEEKS
     Route: 042
     Dates: start: 20190807
  3. LEUCOVORIN. [Suspect]
     Active Substance: LEUCOVORIN
     Dosage: 75 MG, Q2WEEKS
     Route: 042
     Dates: start: 20190807
  4. INSULIN ASPART [Concomitant]
     Active Substance: INSULIN ASPART
     Dates: start: 1996
  5. DUTASTERIDE. [Concomitant]
     Active Substance: DUTASTERIDE
     Dates: start: 2014
  6. 5-FLUOROURACIL [Suspect]
     Active Substance: FLUOROURACIL
     Dosage: 4550 MG, FORTNIGHTY
     Route: 040
     Dates: start: 20190116, end: 20190710
  7. METFORMIN HYDROCHLORIDE W/SITAGLIPTIN [Concomitant]
     Active Substance: METFORMIN HYDROCHLORIDE\SITAGLIPTIN PHOSPHATE
     Dosage: 1000/50 MG
     Dates: start: 1996
  8. PANTOPRAZOLE [Concomitant]
     Active Substance: PANTOPRAZOLE
     Dates: start: 2018
  9. ALPRAZOLAM. [Concomitant]
     Active Substance: ALPRAZOLAM
     Dates: start: 2017
  10. STEMETIL [Concomitant]
     Active Substance: PROCHLORPERAZINE
     Dates: start: 20190111
  11. IRINOTECAN [Suspect]
     Active Substance: IRINOTECAN
     Dosage: 280 MG, Q2WEEKS
     Route: 042
     Dates: start: 20190807
  12. PERINDOPRIL [Concomitant]
     Active Substance: PERINDOPRIL
     Dates: start: 2012
  13. IRINOTECAN [Suspect]
     Active Substance: IRINOTECAN
     Indication: COLORECTAL CANCER METASTATIC
     Dosage: 280 MG, FORTNIGHTY
     Route: 042
     Dates: start: 20190116, end: 20190710
  14. 5-FLUOROURACIL [Suspect]
     Active Substance: FLUOROURACIL
     Indication: COLORECTAL CANCER METASTATIC
     Dosage: 775 MG, FORTNIGHTY
     Route: 040
     Dates: start: 20190116, end: 20190327
  15. AMLODIPINE [Concomitant]
     Active Substance: AMLODIPINE BESYLATE
     Dates: start: 2012
  16. TAMSULOSIN [Concomitant]
     Active Substance: TAMSULOSIN
     Dates: start: 2014
  17. OLANZAPINE. [Concomitant]
     Active Substance: OLANZAPINE
     Dates: start: 20190130
  18. BEVACIZUMAB. [Suspect]
     Active Substance: BEVACIZUMAB
     Indication: COLORECTAL CANCER METASTATIC
     Dosage: 190 MG, FORTNIGHTY
     Route: 042
     Dates: start: 20190116, end: 20190710
  19. BEVACIZUMAB. [Suspect]
     Active Substance: BEVACIZUMAB
     Dosage: 190 MG, Q2WEEKS
     Route: 042
     Dates: start: 20190807

REACTIONS (1)
  - Small intestinal obstruction [Recovered/Resolved]

NARRATIVE: CASE EVENT DATE: 20190721
